FAERS Safety Report 4300068-7 (Version None)
Quarter: 2004Q1

REPORT INFORMATION
  Report Type: 
  Country: None (occurrence: None)
  Receive Date: 20040220
  Receipt Date: 20030626
  Transmission Date: 20041129
  Serious: Yes (Hospitalization)
  Sender: FDA-Public Use
  Company Number: ZA-BRISTOL-MYERS SQUIBB COMPANY-12310660

PATIENT
  Age: 54 Year
  Sex: Male

DRUGS (3)
  1. ATAZANAVIR [Suspect]
     Indication: HIV INFECTION
     Dosage: INTERRUPTED
     Route: 048
     Dates: start: 20010905
  2. ZERIT [Suspect]
     Indication: HIV INFECTION
     Dosage: INTERRUPTED
     Route: 048
     Dates: start: 20010905
  3. LAMIVUDINE [Suspect]
     Indication: HIV INFECTION
     Dosage: INTERRUPTED
     Route: 048
     Dates: start: 20010905

REACTIONS (5)
  - CEREBROVASCULAR ACCIDENT [None]
  - CHEST PAIN [None]
  - DIZZINESS [None]
  - FAECALOMA [None]
  - NON-CARDIAC CHEST PAIN [None]
